FAERS Safety Report 5239140-6 (Version None)
Quarter: 2007Q1

REPORT INFORMATION
  Report Type: 
  Country: None (occurrence: None)
  Receive Date: 20061208
  Receipt Date: 20050513
  Transmission Date: 20070707
  Serious: Yes (Other)
  Sender: FDA-Public Use
  Company Number: 2005UW07476

PATIENT
  Age: 71 Year
  Sex: Female
  Weight: 68 kg

DRUGS (2)
  1. CRESTOR [Suspect]
     Indication: BLOOD CHOLESTEROL INCREASED
     Dates: start: 20050501
  2. NORVASC [Concomitant]

REACTIONS (1)
  - BURNING SENSATION [None]
